FAERS Safety Report 8024483-3 (Version None)
Quarter: 2011Q4

REPORT INFORMATION
  Report Type: 
  Country: None (occurrence: None)
  Receive Date: 20111130
  Receipt Date: 20110627
  Transmission Date: 20120403
  Serious: Yes (Hospitalization)
  Sender: FDA-Public Use
  Company Number: 330777

PATIENT
  Age: 73 Year
  Sex: Male
  Weight: 82.1 kg

DRUGS (1)
  1. NOVOLOG [Suspect]
     Indication: TYPE 2 DIABETES MELLITUS
     Dosage: 15 U, TID, BEFORE MEALS, SUBCUTANEOUS
     Route: 058
     Dates: start: 20090101

REACTIONS (1)
  - URINARY TRACT INFECTION [None]
